FAERS Safety Report 6878710-6 (Version None)
Quarter: 2010Q3

REPORT INFORMATION
  Report Type: 
  Country: None (occurrence: None)
  Receive Date: 20100728
  Receipt Date: 20100722
  Transmission Date: 20110219
  Serious: Yes (Other)
  Sender: FDA-Public Use
  Company Number: US-SANOFI-AVENTIS-2010SA034432

PATIENT
  Sex: Male
  Weight: 103 kg

DRUGS (3)
  1. LANTUS [Suspect]
     Indication: TYPE 2 DIABETES MELLITUS
     Dosage: 60 UNITS/15 UNITS
     Route: 058
     Dates: start: 20060101
  2. OPTICLICK [Suspect]
     Indication: TYPE 2 DIABETES MELLITUS
     Dates: start: 20060101
  3. ALL OTHER THERAPEUTIC PRODUCTS [Concomitant]

REACTIONS (6)
  - AMMONIA INCREASED [None]
  - CHOLECYSTECTOMY [None]
  - CONFUSIONAL STATE [None]
  - FACIAL PAIN [None]
  - HEPATIC CIRRHOSIS [None]
  - HERPES ZOSTER [None]
